FAERS Safety Report 9630788 (Version 1)
Quarter: 2013Q4

REPORT INFORMATION
  Report Type: Spontaneous
  Country: US (occurrence: None)
  Receive Date: 20131016
  Receipt Date: 20131016
  Transmission Date: 20140711
  Serious: Yes (Life-Threatening, Hospitalization)
  Sender: FDA-Public Use
  Company Number: None

PATIENT
  Age: 72 Year
  Sex: Male
  Weight: 147 kg

DRUGS (7)
  1. VANCOMYCIN [Suspect]
     Indication: OSTEOMYELITIS
     Dosage: 1,750MG  IV  3X/WEEK
     Route: 042
     Dates: start: 20130815
  2. VANCOMYCIN [Suspect]
     Indication: SEPSIS
     Dosage: 1,750MG  IV  3X/WEEK
     Route: 042
     Dates: start: 20130815
  3. FORTAZ [Suspect]
     Indication: OSTEOMYELITIS
     Dosage: 2,000MG  IV  3X/WEEK
     Route: 042
     Dates: start: 20130815
  4. FORTAZ [Suspect]
     Indication: SEPSIS
     Dosage: 2,000MG  IV  3X/WEEK
     Route: 042
     Dates: start: 20130815
  5. LIQUACELL [Concomitant]
  6. ZEMPLAR [Concomitant]
  7. EPOGEN [Concomitant]

REACTIONS (4)
  - Pruritus [None]
  - Respiratory distress [None]
  - Respiratory arrest [None]
  - Respiratory failure [None]
